FAERS Safety Report 15884225 (Version 6)
Quarter: 2021Q2

REPORT INFORMATION
  Report Type: Spontaneous
  Country: US (occurrence: US)
  Receive Date: 20190129
  Receipt Date: 20210527
  Transmission Date: 20210716
  Serious: Yes (Other)
  Sender: FDA-Public Use
  Company Number: US-PFIZER INC-2015335992

PATIENT
  Age: 82 Year
  Sex: Female
  Weight: 116 kg

DRUGS (1)
  1. CADUET [Suspect]
     Active Substance: AMLODIPINE BESYLATE\ATORVASTATIN CALCIUM
     Indication: BLOOD PRESSURE ABNORMAL
     Dosage: 1 DF, 1X/DAY (10 MG/20 MG, ORALLY, ONCE A DAY)
     Route: 048

REACTIONS (8)
  - Extra dose administered [Unknown]
  - Illness [Unknown]
  - Energy increased [Unknown]
  - Coma [Unknown]
  - Hand deformity [Unknown]
  - Fall [Unknown]
  - Upper limb fracture [Unknown]
  - Memory impairment [Unknown]
